FAERS Safety Report 11133248 (Version 1)
Quarter: 2015Q2

REPORT INFORMATION
  Report Type: Spontaneous
  Country: US (occurrence: US)
  Receive Date: 20150522
  Receipt Date: 20150522
  Transmission Date: 20150821
  Serious: No
  Sender: FDA-Public Use
  Company Number: US-ASTRAZENECA-2015SE44914

PATIENT
  Sex: Female
  Weight: 80.7 kg

DRUGS (4)
  1. QUINAPRIL [Concomitant]
     Active Substance: QUINAPRIL\QUINAPRIL HYDROCHLORIDE
  2. JARDIANCE [Concomitant]
     Active Substance: EMPAGLIFLOZIN
  3. BYDUREON [Suspect]
     Active Substance: EXENATIDE
     Indication: DIABETES MELLITUS
     Route: 058
  4. HYDROCHLOROTHIAZIDE. [Concomitant]
     Active Substance: HYDROCHLOROTHIAZIDE

REACTIONS (4)
  - Injection site pain [Unknown]
  - Injection site extravasation [Unknown]
  - Drug dose omission [Unknown]
  - Injection site mass [Unknown]
